FAERS Safety Report 5621230-7 (Version None)
Quarter: 2008Q1

REPORT INFORMATION
  Report Type: 
  Country: None (occurrence: None)
  Receive Date: 20080114
  Receipt Date: 20070220
  Transmission Date: 20080703
  Serious: Yes (Other)
  Sender: FDA-Public Use
  Company Number: A03200701576

PATIENT
  Age: 70 Year
  Sex: Female

DRUGS (38)
  1. PLAVIX [Suspect]
     Indication: ACUTE CORONARY SYNDROME
     Dosage: 75 MG QD-ORAL
     Route: 048
     Dates: start: 20070130, end: 20070202
  2. PLAVIX [Suspect]
     Indication: CORONARY ARTERY DISEASE
     Dosage: 75 MG QD-ORAL
     Route: 048
     Dates: start: 20070130, end: 20070202
  3. PLAVIX [Suspect]
     Indication: ACUTE CORONARY SYNDROME
     Dosage: ORAL
     Route: 048
     Dates: start: 20070204
  4. PLAVIX [Suspect]
     Indication: ACUTE CORONARY SYNDROME
     Dosage: ORAL
     Route: 048
     Dates: start: 20070126, end: 20070129
  5. PLAVIX [Suspect]
     Indication: CORONARY ARTERY DISEASE
     Dosage: ORAL
     Route: 048
     Dates: start: 20070126, end: 20070129
  6. PLAVIX [Suspect]
     Indication: ACUTE CORONARY SYNDROME
     Dosage: ORAL
     Route: 048
     Dates: start: 20070702
  7. PLAVIX [Suspect]
     Indication: CORONARY ARTERY DISEASE
     Dosage: ORAL
     Route: 048
     Dates: start: 20070702
  8. RIVAROXABAN OD OR RIVAROXABAN BID OR PLACEBO [Suspect]
     Indication: ACUTE CORONARY SYNDROME
     Dosage: ORAL
     Route: 048
     Dates: start: 20070130, end: 20070202
  9. RIVAROXABAN OD OR RIVAROXABAN BID OR PLACEBO [Suspect]
     Indication: ACUTE CORONARY SYNDROME
     Dosage: ORAL
     Route: 048
     Dates: start: 20070209, end: 20070412
  10. RIVAROXABAN OD OR RIVAROXABAN BID OR PLACEBO [Suspect]
     Indication: ACUTE CORONARY SYNDROME
     Dosage: ORAL
     Route: 048
     Dates: start: 20070416, end: 20070701
  11. ASPIRIN [Suspect]
     Indication: ACUTE CORONARY SYNDROME
     Dosage: 81 MG QD-ORAL
     Route: 048
     Dates: start: 20070130, end: 20070202
  12. ASPIRIN [Suspect]
     Indication: CORONARY ARTERY DISEASE
     Dosage: 81 MG QD-ORAL
     Route: 048
     Dates: start: 20070130, end: 20070202
  13. ASPIRIN [Suspect]
     Indication: ACUTE CORONARY SYNDROME
     Dosage: 81 MG QD-ORAL
     Route: 048
     Dates: start: 20070201
  14. ASPIRIN [Suspect]
     Indication: CORONARY ARTERY DISEASE
     Dosage: 81 MG QD-ORAL
     Route: 048
     Dates: start: 20070201
  15. BENAZEPRIL HYDROCHLORIDE [Concomitant]
  16. CARBAMAZEPINE [Concomitant]
  17. TERAZOSIN HCL [Concomitant]
  18. HYDROCHLOROTHIAZIDE [Concomitant]
  19. ACETYLSALICYLIC ACID SRT [Concomitant]
  20. SERTRALINE HYDROCHLORIDE [Concomitant]
  21. ROSUVASTATIN [Concomitant]
  22. PREGABALIN [Concomitant]
  23. PRAMIPEXOLE DIHYDROCHLORIDE [Concomitant]
  24. HYDROXYZINE [Concomitant]
  25. INSULIN LISPRO [Concomitant]
  26. VITAMIN CAP [Concomitant]
  27. LORAZEPAM [Concomitant]
  28. PANTOPRAZOLE SODIUM [Concomitant]
  29. INSULIN [Concomitant]
  30. ACETAMINOPHEN [Concomitant]
  31. EPTIFIBATIDE [Concomitant]
  32. HEPARIN [Concomitant]
  33. ATENOLOL [Concomitant]
  34. HYDROCODONE BITARTRATE + ACETAMINOPHEN [Concomitant]
  35. DILTIAZEM [Concomitant]
  36. INSULIN GLARGINE [Concomitant]
  37. COMBIVENT [Concomitant]
  38. ROPINIROLE HCL [Concomitant]

REACTIONS (10)
  - ASTHENIA [None]
  - BLOOD CREATINE INCREASED [None]
  - DIZZINESS [None]
  - ECCHYMOSIS [None]
  - GASTROINTESTINAL HAEMORRHAGE [None]
  - HAEMATOMA [None]
  - OCCULT BLOOD POSITIVE [None]
  - RENAL FAILURE ACUTE [None]
  - SOFT TISSUE INJURY [None]
  - SYNCOPE [None]
